FAERS Safety Report 7736361-5 (Version None)
Quarter: 2011Q3

REPORT INFORMATION
  Report Type: 
  Country: None (occurrence: None)
  Receive Date: 20110908
  Receipt Date: 20110902
  Transmission Date: 20111222
  Serious: Yes (Death)
  Sender: FDA-Public Use
  Company Number: AT-SANOFI-AVENTIS-2011SA028327

PATIENT
  Age: 75 Year
  Sex: Male

DRUGS (16)
  1. METFORMIN HCL [Concomitant]
  2. LACTULOSE [Concomitant]
  3. BISACODYL [Concomitant]
  4. MIRTAZAPINE [Concomitant]
  5. PREDNISONE [Suspect]
     Indication: PROSTATE CANCER METASTATIC
     Route: 048
     Dates: start: 20110421
  6. TRIAZOLAM [Concomitant]
  7. ACETYLSALICYLIC ACID SRT [Concomitant]
  8. CABAZITAXEL [Suspect]
     Indication: PROSTATE CANCER METASTATIC
     Route: 041
     Dates: start: 20110421, end: 20110421
  9. TAMSULOSIN HCL [Concomitant]
  10. PANTOPRAZOLE [Concomitant]
  11. ALPRAZOLAM [Concomitant]
  12. LEUPROLIDE ACETATE [Concomitant]
  13. AMLODIPINE [Concomitant]
  14. POLYETHYLENE GLYCOL [Concomitant]
  15. GLICLAZIDE [Concomitant]
  16. METOPROLOL SUCCINATE [Concomitant]

REACTIONS (1)
  - GENERAL PHYSICAL HEALTH DETERIORATION [None]
